FAERS Safety Report 24216398 (Version 1)
Quarter: 2024Q3

REPORT INFORMATION
  Report Type: Spontaneous
  Country: US (occurrence: US)
  Receive Date: 20240816
  Receipt Date: 20240816
  Transmission Date: 20241017
  Serious: Yes (Life-Threatening, Hospitalization, Other)
  Sender: SLATE RUN
  Company Number: US-SLATERUN-2024SRLIT00140

PATIENT
  Age: 73 Year
  Sex: Female

DRUGS (1)
  1. AZITHROMYCIN [Suspect]
     Active Substance: AZITHROMYCIN
     Indication: Bronchiolitis
     Route: 065

REACTIONS (1)
  - Pulmonary alveolar haemorrhage [Recovering/Resolving]
